FAERS Safety Report 5021812-X (Version None)
Quarter: 2006Q2

REPORT INFORMATION
  Report Type: 
  Country: None (occurrence: None)
  Receive Date: 20060605
  Receipt Date: 20060518
  Transmission Date: 20061013
  Serious: Yes (Other)
  Sender: FDA-Public Use
  Company Number: US200605004248

PATIENT
  Age: 63 Year
  Sex: Female

DRUGS (1)
  1. EVISTA [Suspect]
     Indication: OSTEOPENIA
     Dosage: ORAL
     Route: 048
     Dates: start: 20000101

REACTIONS (2)
  - NEOPLASM [None]
  - OSTEOPOROSIS [None]
